FAERS Safety Report 6195054-9 (Version None)
Quarter: 2009Q2

REPORT INFORMATION
  Report Type: 
  Country: None (occurrence: None)
  Receive Date: 20090519
  Receipt Date: 20090515
  Transmission Date: 20091009
  Serious: Yes (Hospitalization, Other)
  Sender: FDA-Public Use
  Company Number: FR-RB-009837-09

PATIENT
  Age: 35 Year
  Sex: Female

DRUGS (4)
  1. SUBUTEX [Suspect]
     Indication: DRUG THERAPY
     Route: 065
  2. SUBUTEX [Suspect]
     Route: 042
  3. SUBUTEX [Suspect]
     Route: 065
  4. NOCTAMIDE [Concomitant]
     Indication: INSOMNIA
     Dosage: TAKES 2 TABLETS DAILY

REACTIONS (3)
  - HOSPITALISATION [None]
  - INCORRECT ROUTE OF DRUG ADMINISTRATION [None]
  - SUBSTANCE ABUSE [None]
